FAERS Safety Report 25521770 (Version 1)
Quarter: 2025Q3

REPORT INFORMATION
  Report Type: Spontaneous
  Country: GB (occurrence: GB)
  Receive Date: 20250706
  Receipt Date: 20250706
  Transmission Date: 20251021
  Serious: Yes (Other)
  Sender: TEVA
  Company Number: None

PATIENT
  Age: 10 Year
  Sex: Male
  Weight: 120 kg

DRUGS (1)
  1. DEXAMETHASONE [Suspect]
     Active Substance: DEXAMETHASONE
     Indication: Leukaemia
     Route: 048
     Dates: start: 20200301, end: 20221006

REACTIONS (1)
  - Neuropsychological symptoms [Not Recovered/Not Resolved]

NARRATIVE: CASE EVENT DATE: 20221006
